FAERS Safety Report 9849548 (Version 1)
Quarter: 2014Q1

REPORT INFORMATION
  Report Type: Report from Study
  Country: US (occurrence: US)
  Receive Date: 20140128
  Receipt Date: 20140128
  Transmission Date: 20141002
  Serious: Yes (Other)
  Sender: FDA-Public Use
  Company Number: US-PURDUE-USA-2014-0110654

PATIENT
  Age: 58 Year
  Sex: Female

DRUGS (2)
  1. OXY CR TAB [Suspect]
     Indication: PRODUCT USED FOR UNKNOWN INDICATION
     Dosage: UNKNOWN
     Route: 048
     Dates: start: 2005
  2. OXY CR TAB [Suspect]
     Dosage: 40 MG, BID
     Dates: start: 20140106

REACTIONS (9)
  - Staphylococcal infection [Unknown]
  - Oral surgery [Unknown]
  - Upper respiratory tract infection [Unknown]
  - Bladder disorder [Unknown]
  - Renal disorder [Unknown]
  - Swelling [Unknown]
  - Fluid retention [Unknown]
  - Malaise [Unknown]
  - Intentional drug misuse [Unknown]
